FAERS Safety Report 13902477 (Version 1)
Quarter: 2017Q3

REPORT INFORMATION
  Report Type: Spontaneous
  Country: US (occurrence: US)
  Receive Date: 20170824
  Receipt Date: 20170824
  Transmission Date: 20171127
  Serious: No
  Sender: FDA-Public Use
  Company Number: US-ROCHE-1130062

PATIENT
  Sex: Female

DRUGS (14)
  1. FLUOROURACIL. [Concomitant]
     Active Substance: FLUOROURACIL
     Dosage: 900/60/900
     Route: 065
     Dates: start: 20010830
  2. EPOGEN [Concomitant]
     Active Substance: ERYTHROPOIETIN
     Dosage: 40K
     Route: 065
     Dates: start: 20010904
  3. CYCLOPHOSPHAMIDE. [Concomitant]
     Active Substance: CYCLOPHOSPHAMIDE
     Dosage: 900/60/900
     Route: 065
     Dates: start: 20010830
  4. METHOTREXATE. [Concomitant]
     Active Substance: METHOTREXATE
     Dosage: 900/60/900
     Route: 065
     Dates: start: 20010830
  5. METHOTREXATE. [Concomitant]
     Active Substance: METHOTREXATE
     Dosage: 900/60/900
     Route: 065
     Dates: start: 20010830
  6. CYCLOPHOSPHAMIDE. [Concomitant]
     Active Substance: CYCLOPHOSPHAMIDE
     Dosage: 900/60/900
     Route: 065
     Dates: start: 20011120
  7. FULVESTRANT. [Concomitant]
     Active Substance: FULVESTRANT
     Route: 065
     Dates: start: 20010823
  8. TAXOL [Concomitant]
     Active Substance: PACLITAXEL
     Route: 065
  9. CYCLOPHOSPHAMIDE. [Concomitant]
     Active Substance: CYCLOPHOSPHAMIDE
     Dosage: 900/60/700
     Route: 065
     Dates: start: 20010823
  10. HERCEPTIN [Suspect]
     Active Substance: TRASTUZUMAB
     Indication: BREAST CANCER
     Dosage: LOADING DOSE
     Route: 065
     Dates: start: 20010328
  11. FLUOROURACIL. [Concomitant]
     Active Substance: FLUOROURACIL
     Dosage: 900/60/900
     Route: 065
     Dates: start: 20010920
  12. METHOTREXATE. [Concomitant]
     Active Substance: METHOTREXATE
     Dosage: 400/60/700
     Route: 065
     Dates: start: 20010823
  13. HERCEPTIN [Suspect]
     Active Substance: TRASTUZUMAB
     Dosage: MAINTAINANCE DOSE
     Route: 065
  14. FLUOROURACIL. [Concomitant]
     Active Substance: FLUOROURACIL
     Dosage: 900/60/700
     Route: 065
     Dates: start: 20010823

REACTIONS (1)
  - Back pain [Unknown]
